FAERS Safety Report 8918012 (Version 1)
Quarter: 2012Q4

REPORT INFORMATION
  Report Type: Report from Study
  Country: US (occurrence: US)
  Receive Date: 20121120
  Receipt Date: 20121120
  Transmission Date: 20130627
  Serious: Yes (Other)
  Sender: FDA-Public Use
  Company Number: US-BAXTER-2012BAX015869

PATIENT
  Age: 71 Year

DRUGS (3)
  1. CYTOXAN? (CYCLOPHOSPHAMIDE FOR INJECTION, USP) [Suspect]
     Indication: CLL
     Route: 065
  2. PENTOSTATIN [Suspect]
     Indication: CLL
     Route: 065
  3. RITUXAN [Suspect]
     Indication: CLL
     Route: 065

REACTIONS (2)
  - Sepsis syndrome [Unknown]
  - Pneumonia [Unknown]
